FAERS Safety Report 9629091 (Version 1)
Quarter: 2013Q4

REPORT INFORMATION
  Report Type: Spontaneous
  Country: GB (occurrence: GB)
  Receive Date: 20131017
  Receipt Date: 20131017
  Transmission Date: 20140711
  Serious: Yes (Other)
  Sender: FDA-Public Use
  Company Number: GB-PFIZER INC-2013296190

PATIENT
  Age: 71 Year
  Sex: Female
  Weight: 47.4 kg

DRUGS (17)
  1. TAZOCIN [Suspect]
     Indication: SEPSIS
     Dosage: 4.5 G, 3X/DAY
     Route: 042
     Dates: start: 20130817, end: 20130823
  2. ATENOLOL [Concomitant]
     Dosage: UNK
  3. LANSOPRAZOLE [Concomitant]
     Dosage: UNK
  4. ALENDRONIC ACID [Concomitant]
     Dosage: UNK
  5. ALVERINE CITRATE [Concomitant]
     Dosage: UNK
  6. SENNA [Concomitant]
     Dosage: UNK
  7. SULFASALAZINE [Concomitant]
     Dosage: UNK
  8. FENTANYL [Concomitant]
     Dosage: UNK
  9. OXYNORM [Concomitant]
     Dosage: UNK
  10. BETAHISTINE [Concomitant]
     Dosage: UNK
  11. PARACETAMOL [Concomitant]
     Dosage: UNK
  12. ENOXAPARIN [Concomitant]
     Dosage: UNK
  13. NYSTATIN [Concomitant]
     Dosage: UNK
  14. VANCOMYCIN HYDROCHLORIDE [Concomitant]
     Dosage: UNK
     Route: 048
  15. LAXIDO [Concomitant]
     Dosage: UNK
  16. CLOBETASONE [Concomitant]
     Dosage: UNK
  17. E45 [Concomitant]
     Dosage: UNK

REACTIONS (1)
  - Electrocardiogram QT prolonged [Recovered/Resolved]
